FAERS Safety Report 18932858 (Version 1)
Quarter: 2021Q1

REPORT INFORMATION
  Report Type: Spontaneous
  Country: US (occurrence: US)
  Receive Date: 20210224
  Receipt Date: 20210224
  Transmission Date: 20210420
  Serious: Yes (Hospitalization)
  Sender: FDA-Public Use
  Company Number: US-SA-2021SA062143

PATIENT
  Sex: Male

DRUGS (2)
  1. DUPIXENT [Suspect]
     Active Substance: DUPILUMAB
     Dosage: 300MG
     Route: 058
  2. DUPIXENT [Suspect]
     Active Substance: DUPILUMAB
     Indication: DERMATITIS ATOPIC
     Dosage: 600 MG, 1X
     Route: 058
     Dates: start: 202102, end: 202102

REACTIONS (7)
  - Dermatitis atopic [Unknown]
  - Rash [Unknown]
  - Ocular hyperaemia [Unknown]
  - Pruritus [Unknown]
  - Skin exfoliation [Unknown]
  - Eye irritation [Unknown]
  - Product use issue [Unknown]
